FAERS Safety Report 8798661 (Version 2)
Quarter: 2012Q4

REPORT INFORMATION
  Report Type: 
  Country: US (occurrence: US)
  Receive Date: 20120920
  Receipt Date: 20121003
  Transmission Date: 20130627
  Serious: Yes (Other)
  Sender: FDA-Public Use
  Company Number: US-AMGEN-USASP2012059016

PATIENT
  Age: 73 Year
  Sex: Female
  Weight: 62.59 kg

DRUGS (6)
  1. PROLIA [Suspect]
     Indication: OSTEOPOROSIS
     Dosage: 60 mg, UNK
     Route: 058
     Dates: start: 20120430
  2. ESTRACE [Concomitant]
     Dosage: UNK
     Route: 067
  3. LANSOPRAZOLE [Concomitant]
     Dosage: 30 mg, qd
     Route: 048
  4. GABAPENTIN [Concomitant]
     Dosage: 300 mg, tid
     Route: 048
  5. PREMARIN [Concomitant]
     Dosage: 0.625 mg, 2 times/wk
     Route: 067
  6. HYDROCHLOROTHIAZIDE [Concomitant]
     Dosage: 25 mg, qd
     Route: 048

REACTIONS (1)
  - Fibula fracture [Recovered/Resolved]
